FAERS Safety Report 5198393-3 (Version None)
Quarter: 2006Q4

REPORT INFORMATION
  Report Type: 
  Country: None (occurrence: None)
  Receive Date: 20061228
  Receipt Date: 20061228
  Transmission Date: 20070319
  Serious: Yes (Other)
  Sender: FDA-Public Use
  Company Number: None

PATIENT
  Age: 31 Year
  Sex: Female
  Weight: 63.9572 kg

DRUGS (2)
  1. HEPARIN LOCK-FLUSH [Suspect]
     Dosage: 500 UNITS PER DOSE TO FLUSH EVERY 8 HOURS SASH IV
     Route: 042
     Dates: start: 20061222, end: 20061224
  2. SALINE FLUSH PREFILLED 5ML KENDALL [Suspect]
     Dosage: 0.9% NSS 5ML EVERY 8 HOURS SASH IV
     Route: 042
     Dates: start: 20061222, end: 20061224

REACTIONS (3)
  - EYE IRRITATION [None]
  - NASAL DISCOMFORT [None]
  - PHARMACEUTICAL PRODUCT COMPLAINT [None]
